FAERS Safety Report 8102041-X (Version None)
Quarter: 2012Q1

REPORT INFORMATION
  Report Type: 
  Country: None (occurrence: None)
  Receive Date: 20120131
  Receipt Date: 20120124
  Transmission Date: 20120608
  Serious: Yes (Other)
  Sender: FDA-Public Use
  Company Number: US-ASTRAZENECA-2012SE00320

PATIENT
  Age: 45 Year
  Sex: Male

DRUGS (2)
  1. CELEBREX [Concomitant]
  2. NEXIUM [Suspect]
     Route: 048

REACTIONS (6)
  - WRIST FRACTURE [None]
  - GASTROOESOPHAGEAL REFLUX DISEASE [None]
  - OESOPHAGEAL DISORDER [None]
  - DRUG DOSE OMISSION [None]
  - INSOMNIA [None]
  - PNEUMONIA [None]
